FAERS Safety Report 13638901 (Version 2)
Quarter: 2017Q2

REPORT INFORMATION
  Report Type: Spontaneous
  Country: JP (occurrence: JP)
  Receive Date: 20170609
  Receipt Date: 20170627
  Transmission Date: 20170830
  Serious: Yes (Other)
  Sender: FDA-Public Use
  Company Number: JP-PFIZER INC-2017250768

PATIENT
  Age: 70 Year
  Sex: Male

DRUGS (8)
  1. GRANISETRON [Concomitant]
     Active Substance: GRANISETRON
     Dosage: 3 MG, 2X/DAY
     Route: 041
     Dates: start: 20170529, end: 20170531
  2. NEXIUM [Concomitant]
     Active Substance: ESOMEPRAZOLE MAGNESIUM
     Dosage: 20 MG, 1X/DAY
     Route: 048
     Dates: start: 20170528, end: 20170616
  3. METHOTREXATE. [Suspect]
     Active Substance: METHOTREXATE
     Indication: ACUTE LYMPHOCYTIC LEUKAEMIA
     Dosage: 1155 MG, 1X/DAY
     Route: 041
     Dates: start: 20170529, end: 20170530
  4. DAIPHEN [Concomitant]
     Active Substance: SULFAMETHOXAZOLE\TRIMETHOPRIM
     Dosage: 1 DF, 2X/DAY (TWICE A WEEK)
     Route: 048
     Dates: start: 20170528, end: 20170616
  5. SPRYCEL [Concomitant]
     Active Substance: DASATINIB
     Dosage: 100 MG, 1X/DAY
     Route: 048
     Dates: start: 20170601, end: 20170616
  6. SOLU-MEDROL [Concomitant]
     Active Substance: METHYLPREDNISOLONE SODIUM SUCCINATE
     Dosage: 50 MG, 2X/DAY
     Route: 041
     Dates: start: 20170529, end: 20170531
  7. CYLOCIDE [Suspect]
     Active Substance: CYTARABINE
     Indication: ACUTE LYMPHOCYTIC LEUKAEMIA
     Dosage: 1650 MG, 2X/DAY
     Route: 041
     Dates: start: 20170530, end: 20170531
  8. DIFLUCAN [Concomitant]
     Active Substance: FLUCONAZOLE
     Dosage: 200 MG, 1X/DAY
     Route: 048
     Dates: start: 20170528, end: 20170616

REACTIONS (4)
  - Dyslalia [Recovering/Resolving]
  - Gait disturbance [Recovering/Resolving]
  - Overdose [Unknown]
  - Nervous system disorder [Recovering/Resolving]

NARRATIVE: CASE EVENT DATE: 20170529
